FAERS Safety Report 24072079 (Version 1)
Quarter: 2024Q3

REPORT INFORMATION
  Report Type: Spontaneous
  Country: US (occurrence: US)
  Receive Date: 20240710
  Receipt Date: 20240710
  Transmission Date: 20241017
  Serious: No
  Sender: AUROBINDO
  Company Number: US-AUROBINDO-AUR-APL-2024-004537

PATIENT
  Age: 45 Year
  Sex: Female
  Weight: 108.86 kg

DRUGS (1)
  1. ATOMOXETINE [Suspect]
     Active Substance: ATOMOXETINE HYDROCHLORIDE
     Indication: Attention deficit hyperactivity disorder
     Dosage: 100 MILLIGRAM, ONCE A DAY
     Route: 048
     Dates: start: 20240115, end: 20240121

REACTIONS (8)
  - Illness [Recovered/Resolved]
  - Oxygen saturation decreased [Recovered/Resolved]
  - Heart rate decreased [Recovered/Resolved]
  - Heart rate increased [Recovered/Resolved]
  - Feeling hot [Recovered/Resolved]
  - Hypoaesthesia [Recovered/Resolved]
  - Dizziness [Recovered/Resolved]
  - Product dose omission issue [Recovered/Resolved]

NARRATIVE: CASE EVENT DATE: 20240115
